FAERS Safety Report 10419919 (Version 1)
Quarter: 2014Q2

REPORT INFORMATION
  Report Type: Spontaneous
  Country: US (occurrence: None)
  Receive Date: 20140625
  Receipt Date: 20140625
  Transmission Date: 20141212
  Serious: Yes (Other)
  Sender: FDA-Public Use
  Company Number: AUR-APL-2013-05575

PATIENT
  Sex: Female

DRUGS (2)
  1. ZOLPIDEM (ZOLPIDEM) [Suspect]
     Indication: PRODUCT USED FOR UNKNOWN INDICATION
  2. OLANZAPINE [Concomitant]

REACTIONS (6)
  - Panic attack [None]
  - Anxiety [None]
  - Dyspnoea [None]
  - Dysphagia [None]
  - Pharyngeal oedema [None]
  - Crying [None]
